FAERS Safety Report 16744466 (Version 1)
Quarter: 2019Q3

REPORT INFORMATION
  Report Type: Spontaneous
  Country: DE (occurrence: DE)
  Receive Date: 20190827
  Receipt Date: 20190827
  Transmission Date: 20191005
  Serious: Yes (Life-Threatening, Hospitalization, Other)
  Sender: FDA-Public Use
  Company Number: DE-TEVA-2019-DE-1093151

PATIENT
  Age: 72 Year
  Sex: Male
  Weight: 85 kg

DRUGS (7)
  1. THIAMAZOL [Concomitant]
     Active Substance: METHIMAZOLE
     Dosage: 5 MILLIGRAM
     Route: 048
  2. TAMSULOSIN [Concomitant]
     Active Substance: TAMSULOSIN
     Dosage: 0.4 MILLIGRAM
     Route: 048
  3. NITROFURANTOIN. [Suspect]
     Active Substance: NITROFURANTOIN
     Indication: URINARY TRACT INFECTION
     Dosage: 100 MILLIGRAM
     Route: 048
     Dates: start: 20180731, end: 201906
  4. AMLODIPIN [Concomitant]
     Active Substance: AMLODIPINE BESYLATE
     Dosage: 10 MILLIGRAM
     Route: 048
  5. CITALOPRAM [Concomitant]
     Active Substance: CITALOPRAM HYDROBROMIDE
     Dosage: 20 MILLIGRAM
     Route: 048
  6. METOPROLOL. [Concomitant]
     Active Substance: METOPROLOL
     Route: 048
  7. FUROSEMID [Concomitant]
     Active Substance: FUROSEMIDE
     Dosage: 40 MILLIGRAM
     Route: 048

REACTIONS (2)
  - Respiratory failure [Not Recovered/Not Resolved]
  - Pulmonary fibrosis [Not Recovered/Not Resolved]

NARRATIVE: CASE EVENT DATE: 201905
